FAERS Safety Report 6368381-X (Version None)
Quarter: 2009Q3

REPORT INFORMATION
  Report Type: 
  Country: None (occurrence: None)
  Receive Date: 20090801
  Receipt Date: 20090224
  Transmission Date: 20100115
  Serious: Yes (Other)
  Sender: FDA-Public Use
  Company Number: 163-20484-09020104

PATIENT
  Age: 52 Year
  Sex: Male

DRUGS (1)
  1. INNOHEP [Suspect]
     Indication: DRUG USE FOR UNKNOWN INDICATION
     Dosage: 175 IU/KG, DAILY, 213 IU/KG,
     Dates: start: 20080701

REACTIONS (1)
  - DEEP VEIN THROMBOSIS [None]
